FAERS Safety Report 23546105 (Version 1)
Quarter: 2024Q1

REPORT INFORMATION
  Report Type: Report from Study
  Country: CA (occurrence: CA)
  Receive Date: 20240220
  Receipt Date: 20240220
  Transmission Date: 20240410
  Serious: Yes (Hospitalization)
  Sender: FDA-Public Use
  Company Number: CA-OTSUKA-2024_004176

PATIENT
  Age: 77 Year
  Sex: Female

DRUGS (1)
  1. CEDAZURIDINE\DECITABINE [Suspect]
     Active Substance: CEDAZURIDINE\DECITABINE
     Indication: Chronic myelomonocytic leukaemia
     Dosage: 1 DF (35 MG DECITABINE AND 100 MG CEDAZURIDINE), QD (ON DAYS 1 TO 5) EVERY 28 DAYS
     Route: 048
     Dates: start: 20240109

REACTIONS (1)
  - Full blood count abnormal [Unknown]

NARRATIVE: CASE EVENT DATE: 20240101
